FAERS Safety Report 9462415 (Version 2)
Quarter: 2015Q2

REPORT INFORMATION
  Report Type: Spontaneous
  Country: GR (occurrence: GR)
  Receive Date: 20130816
  Receipt Date: 20150430
  Transmission Date: 20150821
  Serious: Yes (Hospitalization, Other)
  Sender: FDA-Public Use
  Company Number: PHHY2013GR086245

PATIENT
  Age: 76 Year
  Sex: Female

DRUGS (2)
  1. GLIMEPIRIDE. [Interacting]
     Active Substance: GLIMEPIRIDE
     Indication: TYPE 2 DIABETES MELLITUS
     Route: 065
  2. ISONIAZID. [Suspect]
     Active Substance: ISONIAZID
     Indication: LATENT TUBERCULOSIS
     Route: 065

REACTIONS (7)
  - Blood insulin increased [Unknown]
  - Drug interaction [Unknown]
  - Hypoglycaemia [Recovered/Resolved]
  - Palpitations [Unknown]
  - Cold sweat [Unknown]
  - Lethargy [Unknown]
  - Insulin C-peptide increased [Unknown]
